FAERS Safety Report 22538195 (Version 10)
Quarter: 2024Q1

REPORT INFORMATION
  Report Type: Report from Study
  Country: US (occurrence: US)
  Receive Date: 20230608
  Receipt Date: 20240130
  Transmission Date: 20240410
  Serious: Yes (Other)
  Sender: FDA-Public Use
  Company Number: US-ACADIA PHARMACEUTICALS INC.-ACA-2023-TRF-001888

PATIENT
  Age: 19 Year
  Sex: Female

DRUGS (11)
  1. DAYBUE [Suspect]
     Active Substance: TROFINETIDE
     Indication: Rett syndrome
     Dosage: 10 MILLILITER, BID
     Route: 048
     Dates: start: 20230505, end: 2023
  2. DAYBUE [Suspect]
     Active Substance: TROFINETIDE
     Dosage: 50 MILLILITER, BID
     Route: 048
  3. DAYBUE [Suspect]
     Active Substance: TROFINETIDE
     Dosage: 25 MILLILITER, BID
     Route: 048
  4. DAYBUE [Suspect]
     Active Substance: TROFINETIDE
     Dosage: 20 MILLILITER, QID VIA G TUBE
  5. DAYBUE [Suspect]
     Active Substance: TROFINETIDE
     Dosage: 25 MILLILITER, BID VIA G TUBE
  6. DAYBUE [Suspect]
     Active Substance: TROFINETIDE
     Dosage: 30 MILLILITER, BID VIA G TUBE
  7. DAYBUE [Suspect]
     Active Substance: TROFINETIDE
     Dosage: 25 MILLILITER, BID VIA G TUBE
  8. DAYBUE [Suspect]
     Active Substance: TROFINETIDE
     Dosage: 25ML IN AM + 28 MILLILITER IN AFTERNOON
  9. DIAZEPAM [Concomitant]
     Active Substance: DIAZEPAM
     Dosage: 1 MILLIGRAM, QID
  10. ENEMA [PHOSPHORIC ACID SODIUM] [Concomitant]
     Indication: Constipation
  11. MILK OF MAGNESIA [Concomitant]
     Active Substance: MAGNESIUM HYDROXIDE
     Indication: Constipation

REACTIONS (28)
  - Dystonia [Not Recovered/Not Resolved]
  - Pneumonia aspiration [Not Recovered/Not Resolved]
  - Ill-defined disorder [Not Recovered/Not Resolved]
  - Muscular weakness [Not Recovered/Not Resolved]
  - Intermenstrual bleeding [Not Recovered/Not Resolved]
  - Complication associated with device [Not Recovered/Not Resolved]
  - Inappropriate schedule of product administration [Not Recovered/Not Resolved]
  - Prescribed underdose [Not Recovered/Not Resolved]
  - Speech disorder [Not Recovered/Not Resolved]
  - Hormone level abnormal [Not Recovered/Not Resolved]
  - Muscle spasms [Not Recovered/Not Resolved]
  - Acne [Not Recovered/Not Resolved]
  - Mood altered [Not Recovered/Not Resolved]
  - Insomnia [Not Recovered/Not Resolved]
  - Intermenstrual bleeding [Not Recovered/Not Resolved]
  - Gastrooesophageal reflux disease [Not Recovered/Not Resolved]
  - Skin disorder [Not Recovered/Not Resolved]
  - Malabsorption [Not Recovered/Not Resolved]
  - Weight increased [Not Recovered/Not Resolved]
  - Constipation [Not Recovered/Not Resolved]
  - Underdose [Not Recovered/Not Resolved]
  - Skin irritation [Not Recovered/Not Resolved]
  - Gastrostomy tube site complication [Not Recovered/Not Resolved]
  - Facial paresis [Not Recovered/Not Resolved]
  - Dysphagia [Not Recovered/Not Resolved]
  - Abdominal pain upper [Not Recovered/Not Resolved]
  - Device occlusion [Not Recovered/Not Resolved]
  - Diarrhoea [Not Recovered/Not Resolved]

NARRATIVE: CASE EVENT DATE: 20230505
